FAERS Safety Report 23466874 (Version 4)
Quarter: 2024Q2

REPORT INFORMATION
  Report Type: Report from Study
  Country: US (occurrence: US)
  Receive Date: 20240201
  Receipt Date: 20240617
  Transmission Date: 20240716
  Serious: Yes (Other)
  Sender: FDA-Public Use
  Company Number: US-002147023-NVSC2024US022710

PATIENT
  Sex: Male

DRUGS (1)
  1. KESIMPTA [Suspect]
     Active Substance: OFATUMUMAB
     Indication: Multiple sclerosis
     Dosage: 20 MG, QW
     Route: 058
     Dates: start: 20221220

REACTIONS (8)
  - Hemiparesis [Not Recovered/Not Resolved]
  - Amyotrophic lateral sclerosis [Unknown]
  - Influenza [Unknown]
  - Cough [Unknown]
  - Sneezing [Unknown]
  - Sinus congestion [Unknown]
  - Insomnia [Unknown]
  - Fall [Unknown]
